FAERS Safety Report 23246853 (Version 1)
Quarter: 2023Q4

REPORT INFORMATION
  Report Type: Spontaneous
  Country: US (occurrence: None)
  Receive Date: 20231130
  Receipt Date: 20231130
  Transmission Date: 20240110
  Serious: No
  Sender: FDA-Public Use
  Company Number: None

PATIENT
  Age: 36 Year
  Sex: Female
  Weight: 111.6 kg

DRUGS (9)
  1. COSENTYX [Suspect]
     Active Substance: SECUKINUMAB
     Indication: Ankylosing spondylitis
     Dosage: OTHER QUANTITY : 1 INJECTION(S);?OTHER FREQUENCY : BI WEEKLY;?
     Route: 058
     Dates: start: 20231026
  2. BUPROPION [Concomitant]
     Active Substance: BUPROPION
  3. LUNESTA [Concomitant]
     Active Substance: ESZOPICLONE
  4. Cekexib [Concomitant]
  5. buspone [Concomitant]
  6. lorazapam [Concomitant]
  7. RIZATRIPTAN [Concomitant]
  8. TYLENOL WITH CODEINE [Concomitant]
     Active Substance: ACETAMINOPHEN\CODEINE PHOSPHATE
  9. LEVORA [Concomitant]
     Active Substance: ETHINYL ESTRADIOL\LEVONORGESTREL

REACTIONS (6)
  - Migraine [None]
  - Cough [None]
  - Pruritus [None]
  - Flushing [None]
  - Lacrimation increased [None]
  - Malaise [None]

NARRATIVE: CASE EVENT DATE: 20231026
